FAERS Safety Report 6318842-4 (Version None)
Quarter: 2009Q3

REPORT INFORMATION
  Report Type: 
  Country: None (occurrence: None)
  Receive Date: 20090821
  Receipt Date: 20090813
  Transmission Date: 20100115
  Serious: Yes (Hospitalization)
  Sender: FDA-Public Use
  Company Number: ES-GENENTECH-288833

PATIENT
  Age: 35 Year
  Sex: Male

DRUGS (1)
  1. AVASTIN [Suspect]
     Indication: COLON CANCER
     Dosage: 740 MG, UNK
     Route: 065
     Dates: start: 20090707, end: 20090707

REACTIONS (4)
  - ARTHRALGIA [None]
  - DRY MOUTH [None]
  - HYPOAESTHESIA [None]
  - PRURITUS [None]
